FAERS Safety Report 13824928 (Version 1)
Quarter: 2017Q3

REPORT INFORMATION
  Report Type: Other
  Country: GR (occurrence: GR)
  Receive Date: 20170802
  Receipt Date: 20170802
  Transmission Date: 20171127
  Serious: Yes (Disabling, Other)
  Sender: FDA-Public Use
  Company Number: GR-KOWA-17EU001464

PATIENT

DRUGS (8)
  1. EZETROL [Suspect]
     Active Substance: EZETIMIBE
     Indication: PROPHYLAXIS
     Route: 048
     Dates: start: 20161214, end: 20170521
  2. BRILIQUE [Concomitant]
     Active Substance: TICAGRELOR
     Indication: PRODUCT USED FOR UNKNOWN INDICATION
     Dosage: 90 MG, BID
     Route: 048
  3. PITAVA [Suspect]
     Active Substance: PITAVASTATIN
     Indication: PROPHYLAXIS
     Dosage: 4 MG
     Route: 048
     Dates: start: 20161014, end: 20161214
  4. SALOSPIR [Concomitant]
     Active Substance: ASPIRIN
     Indication: PRODUCT USED FOR UNKNOWN INDICATION
     Dosage: 100 MG, QD
     Route: 048
  5. PITAVA [Suspect]
     Active Substance: PITAVASTATIN
     Indication: PROPHYLAXIS
     Dosage: 2 MG
     Route: 048
     Dates: start: 20161214, end: 20170521
  6. TRIATEC                            /00885601/ [Concomitant]
     Active Substance: RAMIPRIL
     Indication: PRODUCT USED FOR UNKNOWN INDICATION
     Dosage: 2.5 MG, QD
     Route: 048
  7. INEGY [Suspect]
     Active Substance: EZETIMIBE\SIMVASTATIN
     Indication: PROPHYLAXIS
     Dosage: 10/20
     Route: 048
     Dates: start: 20160831, end: 20161014
  8. ATROST [Suspect]
     Active Substance: ATORVASTATIN CALCIUM
     Indication: PROPHYLAXIS
     Dosage: 20 MG
     Route: 048
     Dates: start: 20160815, end: 20160831

REACTIONS (4)
  - Blood creatine phosphokinase increased [Unknown]
  - Myalgia [Unknown]
  - Angina pectoris [Unknown]
  - Transaminases increased [Unknown]
